FAERS Safety Report 8192246-4 (Version None)
Quarter: 2012Q1

REPORT INFORMATION
  Report Type: 
  Country: None (occurrence: None)
  Receive Date: 20120307
  Receipt Date: 20120217
  Transmission Date: 20120608
  Serious: Yes (Hospitalization)
  Sender: FDA-Public Use
  Company Number: PHHY2012TR018512

PATIENT
  Age: 57 Year
  Sex: Male

DRUGS (6)
  1. DICLOFENAC SODIUM [Suspect]
     Indication: RHEUMATOID ARTHRITIS
     Dosage: 75 MG, DAILY
  2. METHOTREXATE [Suspect]
     Dosage: 10 MG, QW
  3. PREDNISOLONE [Suspect]
     Indication: RHEUMATOID ARTHRITIS
     Dosage: 7.5 MG, DAILY
  4. METHOTREXATE [Suspect]
     Indication: RHEUMATOID ARTHRITIS
     Dosage: 10 MG, QW
  5. PREDNISOLONE [Suspect]
     Dosage: 5 MG,DAILY
  6. INFLIXIMAB [Suspect]
     Indication: RHEUMATOID ARTHRITIS
     Dosage: 3 MG/KG, AT 0, 2, 6, AND THEN EVERY 8 WEEKS

REACTIONS (15)
  - SPLENOMEGALY [None]
  - JOINT EFFUSION [None]
  - RED BLOOD CELL SEDIMENTATION RATE INCREASED [None]
  - PYREXIA [None]
  - PAIN [None]
  - BRUCELLOSIS [None]
  - HAEMOGLOBIN DECREASED [None]
  - LYMPHADENOPATHY [None]
  - NIGHT SWEATS [None]
  - MUSCULOSKELETAL STIFFNESS [None]
  - JOINT SWELLING [None]
  - POLLAKIURIA [None]
  - DRY MOUTH [None]
  - RHEUMATOID ARTHRITIS [None]
  - ARTHRALGIA [None]
